FAERS Safety Report 15213846 (Version 3)
Quarter: 2018Q3

REPORT INFORMATION
  Report Type: Spontaneous
  Country: US (occurrence: US)
  Receive Date: 20180730
  Receipt Date: 20180817
  Transmission Date: 20181010
  Serious: No
  Sender: FDA-Public Use
  Company Number: US-SA-2018SA202337

PATIENT
  Age: 58 Year
  Sex: Female

DRUGS (2)
  1. PRALUENT [Suspect]
     Active Substance: ALIROCUMAB
     Indication: LOW DENSITY LIPOPROTEIN INCREASED
     Dosage: 75 MG, QOW
     Route: 058
     Dates: start: 20180730, end: 20180808
  2. ALIROCUMAB PREFILLED PEN [Suspect]
     Active Substance: ALIROCUMAB
     Indication: LOW DENSITY LIPOPROTEIN INCREASED
     Dosage: 75 MG, QOW
     Route: 058
     Dates: start: 20180730, end: 20180808

REACTIONS (9)
  - Influenza like illness [Unknown]
  - Feeling abnormal [Unknown]
  - Nasopharyngitis [Unknown]
  - Rhinorrhoea [Unknown]
  - Nausea [Unknown]
  - Cough [Unknown]
  - Injection site bruising [Unknown]
  - Hot flush [Not Recovered/Not Resolved]
  - Abdominal discomfort [Unknown]

NARRATIVE: CASE EVENT DATE: 20180730
